FAERS Safety Report 19208284 (Version 1)
Quarter: 2021Q2

REPORT INFORMATION
  Report Type: Spontaneous
  Country: CA (occurrence: CA)
  Receive Date: 20210503
  Receipt Date: 20210503
  Transmission Date: 20210717
  Serious: Yes (Hospitalization, Other)
  Sender: FDA-Public Use
  Company Number: CA-TEVA-2021-CA-1907970

PATIENT
  Age: 77 Year
  Sex: Male

DRUGS (1)
  1. ACITRETIN UNK [Suspect]
     Active Substance: ACITRETIN
     Indication: CUTANEOUS T-CELL LYMPHOMA
     Dosage: 50 MG, QD
     Route: 048

REACTIONS (2)
  - Diffuse idiopathic skeletal hyperostosis [Unknown]
  - Off label use [Unknown]
